FAERS Safety Report 19465856 (Version 8)
Quarter: 2022Q2

REPORT INFORMATION
  Report Type: Report from Study
  Country: US (occurrence: US)
  Receive Date: 20210626
  Receipt Date: 20220601
  Transmission Date: 20220720
  Serious: Yes (Hospitalization, Disabling, Other)
  Sender: FDA-Public Use
  Company Number: NVSC2021US138669

PATIENT
  Age: 53 Year
  Sex: Female

DRUGS (3)
  1. GILENYA [Suspect]
     Active Substance: FINGOLIMOD HYDROCHLORIDE
     Indication: Relapsing-remitting multiple sclerosis
     Dosage: 0.5 MG, QD
     Route: 048
     Dates: start: 20210617, end: 20220125
  2. GILENYA [Suspect]
     Active Substance: FINGOLIMOD HYDROCHLORIDE
     Indication: Multiple sclerosis
     Dosage: 0.5 MG, QD
     Route: 048
     Dates: start: 20210617
  3. GILENYA [Suspect]
     Active Substance: FINGOLIMOD HYDROCHLORIDE
     Dosage: 0.5 MG, QD
     Route: 048

REACTIONS (18)
  - Seizure [Unknown]
  - Hypoaesthesia [Unknown]
  - Aphasia [Unknown]
  - Dysphagia [Unknown]
  - Epilepsy [Unknown]
  - Progressive multiple sclerosis [Unknown]
  - Gait disturbance [Unknown]
  - Cerebrovascular accident [Unknown]
  - Electrocardiogram QT prolonged [Recovered/Resolved]
  - Feeling hot [Unknown]
  - Hyperhidrosis [Unknown]
  - Incontinence [Unknown]
  - Illness [Unknown]
  - Arthritis [Unknown]
  - COVID-19 [Unknown]
  - Alopecia [Unknown]
  - Back pain [Unknown]
  - Fatigue [Recovered/Resolved]

NARRATIVE: CASE EVENT DATE: 20210617
